FAERS Safety Report 8570799-1 (Version None)
Quarter: 2012Q3

REPORT INFORMATION
  Report Type: 
  Country: None (occurrence: None)
  Receive Date: 20120806
  Receipt Date: 20120727
  Transmission Date: 20120928
  Serious: Yes (Death, Hospitalization)
  Sender: FDA-Public Use
  Company Number: BR-BRISTOL-MYERS SQUIBB COMPANY-16778243

PATIENT
  Age: 60 Year
  Sex: Male

DRUGS (4)
  1. HYDROCHLOROTHIAZDE TAB [Concomitant]
     Dates: end: 20120630
  2. METFORMIN HCL [Concomitant]
     Dates: end: 20120630
  3. IPILIMUMAB [Suspect]
     Indication: MALIGNANT MELANOMA
     Route: 042
     Dates: start: 20120627, end: 20120628
  4. OMEPRAZOLE [Concomitant]
     Dates: end: 20120630

REACTIONS (1)
  - SEPTIC SHOCK [None]
